FAERS Safety Report 15373528 (Version 2)
Quarter: 2018Q4

REPORT INFORMATION
  Report Type: Report from Study
  Country: CA (occurrence: CA)
  Receive Date: 20180912
  Receipt Date: 20181011
  Transmission Date: 20190204
  Serious: Yes (Hospitalization)
  Sender: FDA-Public Use
  Company Number: CA-AMGEN-CANSL2018125141

PATIENT
  Sex: Female

DRUGS (1)
  1. PROLIA [Suspect]
     Active Substance: DENOSUMAB
     Indication: PRODUCT USED FOR UNKNOWN INDICATION
     Dosage: UNK
     Route: 065

REACTIONS (7)
  - Rhinorrhoea [Unknown]
  - Arthralgia [Unknown]
  - Gait disturbance [Unknown]
  - Abdominal pain [Unknown]
  - Hypersensitivity [Unknown]
  - Paraesthesia [Unknown]
  - Myalgia [Unknown]
